FAERS Safety Report 5974051-X (Version None)
Quarter: 2008Q4

REPORT INFORMATION
  Report Type: 
  Country: None (occurrence: None)
  Receive Date: 20081125
  Receipt Date: 20081111
  Transmission Date: 20090506
  Serious: Yes (Hospitalization, Other)
  Sender: FDA-Public Use
  Company Number: 54213

PATIENT
  Age: 9 Year
  Sex: Male

DRUGS (1)
  1. DAUNORUBICIN HYDROCHLORIDE [Suspect]
     Indication: ACUTE LYMPHOCYTIC LEUKAEMIA
     Dosage: 30MG/M2 IV
     Route: 042

REACTIONS (8)
  - CENTRAL NERVOUS SYSTEM LESION [None]
  - FEBRILE NEUTROPENIA [None]
  - GRAND MAL CONVULSION [None]
  - ILEUS PARALYTIC [None]
  - PARAESTHESIA [None]
  - POSTICTAL STATE [None]
  - TUMOUR LYSIS SYNDROME [None]
  - VISUAL IMPAIRMENT [None]
